FAERS Safety Report 22295440 (Version 1)
Quarter: 2023Q2

REPORT INFORMATION
  Report Type: Spontaneous
  Country: US (occurrence: None)
  Receive Date: 20230506
  Receipt Date: 20230506
  Transmission Date: 20230722
  Serious: Yes (Other)
  Sender: FDA-Public Use
  Company Number: None

PATIENT
  Age: 45 Year
  Sex: Female
  Weight: 65.25 kg

DRUGS (1)
  1. POLYMYXIN B SULFATE\TRIMETHOPRIM [Suspect]
     Active Substance: POLYMYXIN B SULFATE\TRIMETHOPRIM
     Indication: Conjunctivitis
     Dosage: OTHER QUANTITY : 2 DROP(S);?OTHER FREQUENCY : EVERY 3 HOURS;?
     Route: 047
     Dates: start: 20230422, end: 20230425

REACTIONS (8)
  - Eye swelling [None]
  - Eyelid margin crusting [None]
  - Feeling abnormal [None]
  - Pruritus [None]
  - Pruritus [None]
  - Visual impairment [None]
  - Drug hypersensitivity [None]
  - Reaction to preservatives [None]

NARRATIVE: CASE EVENT DATE: 20230425
